FAERS Safety Report 6940756-7 (Version None)
Quarter: 2010Q3

REPORT INFORMATION
  Report Type: 
  Country: None (occurrence: None)
  Receive Date: 20100825
  Receipt Date: 20100816
  Transmission Date: 20110219
  Serious: Yes (Other)
  Sender: FDA-Public Use
  Company Number: US-ASTRAZENECA-2010SE31473

PATIENT
  Age: 22482 Day
  Sex: Male
  Weight: 99.8 kg

DRUGS (5)
  1. SYMBICORT [Suspect]
     Indication: ASTHMA
     Dosage: 160/4.5 UG 2 PUFFS BID
     Route: 055
     Dates: start: 20100701, end: 20100705
  2. GENERIC FLOMAX [Concomitant]
  3. CHOLESTEROL [Concomitant]
  4. TRIGLYCERIDE PILLS [Concomitant]
  5. SINGULAIR [Concomitant]

REACTIONS (3)
  - DYSURIA [None]
  - POLLAKIURIA [None]
  - URINARY HESITATION [None]
